FAERS Safety Report 7208306-8 (Version None)
Quarter: 2010Q4

REPORT INFORMATION
  Report Type: 
  Country: None (occurrence: None)
  Receive Date: 20101222
  Receipt Date: 20101210
  Transmission Date: 20110411
  Serious: Yes (Death)
  Sender: FDA-Public Use
  Company Number: 2010000307

PATIENT
  Age: 69 Year
  Sex: Female
  Weight: 63.3 kg

DRUGS (28)
  1. ERLOTINIB (ERLOTINIB) (TABLET) (ERLOTINIB) [Suspect]
     Indication: NON-SMALL CELL LUNG CANCER
     Dosage: 50 MG, QD, ORAL
     Route: 048
     Dates: start: 20090716, end: 20100106
  2. CP-751,871/PLACEBO [Suspect]
     Indication: NON-SMALL CELL LUNG CANCER
     Dosage: 1266 MG, CYCLIC EVERY 3 WEEKS, INTRAVENOUS
     Route: 042
     Dates: start: 20090716, end: 20091229
  3. CIPROFLOXACIN [Concomitant]
  4. LOVENOX [Concomitant]
  5. COLACE (DOCUSATE SODIUM) [Concomitant]
  6. MESALAZINE [Concomitant]
  7. LYRICA [Concomitant]
  8. PANTOPRAZOLE SODIUM [Concomitant]
  9. PREMARIN [Concomitant]
  10. LIPITOR [Concomitant]
  11. CALCIUM [Concomitant]
  12. RIVASA (ACETYLSALICYLIC ACID) [Concomitant]
  13. VITAMIN D [Concomitant]
  14. ACETAMINOPHEN [Concomitant]
  15. METAMUCIL-2 [Concomitant]
  16. LOPERAMIDE HYDROCHLORIDE [Concomitant]
  17. ZANTAC [Concomitant]
  18. ARTIFICIAL TEARS [Concomitant]
  19. MAGIC MOUTHWASH [Concomitant]
  20. ZINC [Concomitant]
  21. NYADERM (NYSTATIN) [Concomitant]
  22. HYDROCORTISONE [Concomitant]
  23. DESONIDE [Concomitant]
  24. HYDROCORTISONE ACETATE [Concomitant]
  25. NYSTATIN [Concomitant]
  26. INFLUENZA VIRUS VACCINE MONOVALENT [Concomitant]
  27. AMOXICILLIN AND CLAVULANATE POTASSIUM [Concomitant]
  28. PEDIALYTE [Concomitant]

REACTIONS (4)
  - CARDIO-RESPIRATORY ARREST [None]
  - GENERAL PHYSICAL HEALTH DETERIORATION [None]
  - INTESTINAL ISCHAEMIA [None]
  - METABOLIC ACIDOSIS [None]
